FAERS Safety Report 8254579-2 (Version None)
Quarter: 2012Q2

REPORT INFORMATION
  Report Type: 
  Country: None (occurrence: None)
  Receive Date: 20120403
  Receipt Date: 20120326
  Transmission Date: 20120825
  Serious: Yes (Hospitalization)
  Sender: FDA-Public Use
  Company Number: US-AMGEN-USASP2012019314

PATIENT
  Age: 63 Year
  Sex: Female

DRUGS (2)
  1. METHOTREXATE [Concomitant]
     Dosage: 5 MG, UNK
     Dates: start: 20040101
  2. ENBREL [Suspect]
     Indication: ANKYLOSING SPONDYLITIS
     Dosage: 50 MG, QWK
     Dates: start: 20110421, end: 20120226

REACTIONS (4)
  - ARTHRALGIA [None]
  - OSTEOARTHRITIS [None]
  - HIP ARTHROPLASTY [None]
  - MOBILITY DECREASED [None]
